FAERS Safety Report 18698318 (Version 2)
Quarter: 2022Q1

REPORT INFORMATION
  Report Type: Spontaneous
  Country: CH (occurrence: CH)
  Receive Date: 20210105
  Receipt Date: 20220202
  Transmission Date: 20220423
  Serious: Yes (Other)
  Sender: FDA-Public Use
  Company Number: None

PATIENT
  Age: 73 Year
  Sex: Female

DRUGS (16)
  1. ATORVASTATIN [Suspect]
     Active Substance: ATORVASTATIN
     Dosage: 40 MILLIGRAM DAILY;
     Route: 048
     Dates: end: 202001
  2. ROSUVASTATIN [Suspect]
     Active Substance: ROSUVASTATIN
     Dosage: 5 MILLIGRAM DAILY;
     Route: 048
     Dates: start: 20200306
  3. AMLODIPINE BESYLATE\TELMISARTAN [Suspect]
     Active Substance: AMLODIPINE BESYLATE\TELMISARTAN
     Dosage: 1 DOSAGE FORMS DAILY; 1 DF = 5 MG AMLODIPINE BESILATE + 40 MG TELMISARTAN
     Route: 048
     Dates: start: 20200103
  4. REMERON [Suspect]
     Active Substance: MIRTAZAPINE
     Dosage: 15 MILLIGRAM DAILY;
     Route: 048
     Dates: start: 20200102, end: 20200131
  5. REMERON [Suspect]
     Active Substance: MIRTAZAPINE
     Dosage: 30 MILLIGRAM DAILY;
     Route: 048
     Dates: start: 20200131
  6. ASPIRIN [Concomitant]
     Active Substance: ASPIRIN
     Route: 048
     Dates: start: 201910
  7. METOPROLOL SUCCINATE [Concomitant]
     Active Substance: METOPROLOL SUCCINATE
     Route: 048
     Dates: start: 20200922
  8. GLYCOPYRRONIUM\INDACATEROL [Concomitant]
     Active Substance: GLYCOPYRRONIUM\INDACATEROL
     Dates: start: 20200728
  9. Temesta [Concomitant]
     Dosage: IF NECESSARY
     Route: 048
     Dates: start: 202009
  10. ZOLPIDEM [Concomitant]
     Active Substance: ZOLPIDEM TARTRATE
     Route: 048
     Dates: start: 20200928
  11. PRAMIPEXOLE DIHYDROCHLORIDE [Concomitant]
     Active Substance: PRAMIPEXOLE DIHYDROCHLORIDE
     Route: 048
     Dates: start: 20200922
  12. SERTRALINE [Concomitant]
     Active Substance: SERTRALINE HYDROCHLORIDE
     Dates: end: 202001
  13. TICAGRELOR [Concomitant]
     Active Substance: TICAGRELOR
     Dates: end: 202001
  14. MELATONIN [Concomitant]
     Active Substance: MELATONIN
     Dates: end: 202001
  15. IMOVANE [Concomitant]
     Active Substance: ZOPICLONE
     Dates: end: 202001
  16. NICOTINE [Concomitant]
     Active Substance: NICOTINE
     Dates: end: 202001

REACTIONS (2)
  - Dysgeusia [Not Recovered/Not Resolved]
  - Feeding disorder [Not Recovered/Not Resolved]

NARRATIVE: CASE EVENT DATE: 20200101
